FAERS Safety Report 12752788 (Version 1)
Quarter: 2016Q3

REPORT INFORMATION
  Report Type: Spontaneous
  Country: US (occurrence: US)
  Receive Date: 20160916
  Receipt Date: 20160916
  Transmission Date: 20161109
  Serious: Yes (Other)
  Sender: FDA-Public Use
  Company Number: US-CIPLA LTD.-2016US18272

PATIENT

DRUGS (8)
  1. DOXORUBICIN [Suspect]
     Active Substance: DOXORUBICIN
     Indication: LIPOSARCOMA
     Dosage: UNK, SIX CYCLES
     Route: 065
  2. DACARBAZINE. [Suspect]
     Active Substance: DACARBAZINE
     Indication: LIPOSARCOMA RECURRENT
     Dosage: UNK, SIX CYCLES
     Route: 065
  3. TENOFOVIR [Suspect]
     Active Substance: TENOFOVIR
     Indication: RETROPERITONEAL MASS
     Dosage: UNK
     Route: 065
  4. IFOSFAMIDE. [Suspect]
     Active Substance: IFOSFAMIDE
     Indication: RETROPERITONEAL MASS
     Dosage: UNK
     Route: 065
  5. TENOFOVIR [Suspect]
     Active Substance: TENOFOVIR
     Indication: LIPOSARCOMA RECURRENT
     Dosage: UNK, ANOTHER SET
     Route: 065
  6. DACARBAZINE. [Suspect]
     Active Substance: DACARBAZINE
     Indication: LIPOSARCOMA
     Dosage: 100 MG/M2, THREE DAYS FOR EIGHT CYCLES
     Dates: start: 201012
  7. IFOSFAMIDE. [Suspect]
     Active Substance: IFOSFAMIDE
     Indication: LIPOSARCOMA RECURRENT
     Dosage: 2.5 G/M2, FOR THREE DAYS EVERY THREE WEEKS
     Route: 065
     Dates: start: 201012
  8. MESNA. [Suspect]
     Active Substance: MESNA
     Indication: LIPOSARCOMA RECURRENT
     Dosage: UNK, DAILY FOR THREE DAYS FOR EIGHT CYCLES
     Route: 065
     Dates: start: 201112

REACTIONS (4)
  - Disease progression [Unknown]
  - Hepatitis B [Unknown]
  - Renal failure [Unknown]
  - Disease recurrence [Unknown]

NARRATIVE: CASE EVENT DATE: 200907
